FAERS Safety Report 25962819 (Version 1)
Quarter: 2025Q4

REPORT INFORMATION
  Report Type: Spontaneous
  Country: EU (occurrence: EU)
  Receive Date: 20251027
  Receipt Date: 20251027
  Transmission Date: 20260118
  Serious: Yes (Other)
  Sender: CHEPLAPHARM
  Company Number: None

PATIENT
  Age: 85 Year
  Sex: Male

DRUGS (23)
  1. CLONAZEPAM [Suspect]
     Active Substance: CLONAZEPAM
     Indication: Depression
     Route: 048
     Dates: start: 20250213, end: 20250403
  2. CLONAZEPAM [Suspect]
     Active Substance: CLONAZEPAM
     Indication: Depression
     Dosage: 0.5 MG 0-0-1?DAILY DOSE: 0.5 MILLIGRAM
  3. QUETIAPINE [Suspect]
     Active Substance: QUETIAPINE
     Indication: Depression
     Dosage: 25MG 0-0-1?DAILY DOSE: 25 MILLIGRAM
  4. QUETIAPINE [Suspect]
     Active Substance: QUETIAPINE
     Indication: Dementia
     Dosage: 25MG 0-0-1?DAILY DOSE: 25 MILLIGRAM
  5. SERTRALINE [Interacting]
     Active Substance: SERTRALINE HYDROCHLORIDE
     Indication: Dementia
     Dosage: 50 MG: 1/2 TABLET?DAILY DOSE: 25 MILLIGRAM
     Route: 048
     Dates: start: 20240401, end: 20250403
  6. SERTRALINE [Interacting]
     Active Substance: SERTRALINE HYDROCHLORIDE
     Indication: Depression
     Dosage: 50 MG: 1/2 TABLET?DAILY DOSE: 25 MILLIGRAM
     Route: 048
     Dates: start: 20240401, end: 20250403
  7. MIRTAZAPINE [Interacting]
     Active Substance: MIRTAZAPINE
     Indication: Depression
     Dosage: DAILY DOSE: 7.5 MILLIGRAM
     Route: 048
     Dates: start: 20240401
  8. RIVASTIGMINE [Suspect]
     Active Substance: RIVASTIGMINE
     Indication: Depression
     Dosage: 4.6 PATCH EVERY 24 HOURS
  9. RIVASTIGMINE [Suspect]
     Active Substance: RIVASTIGMINE
     Indication: Dementia
     Dosage: 4.6 PATCH EVERY 24 HOURS
  10. FUROSEMIDE [Concomitant]
     Active Substance: FUROSEMIDE
     Indication: Cardiac failure
     Dosage: 1-0-0?DAILY DOSE: 40 MILLIGRAM
     Route: 048
  11. CANDESARTAN [Concomitant]
     Active Substance: CANDESARTAN
     Dosage: 16MG 1-0-0?DAILY DOSE: 16 MILLIGRAM
  12. CANDESARTAN [Concomitant]
     Active Substance: CANDESARTAN
     Dosage: 1 TABLET AT BREAKFAST?DAILY DOSE: 1 DOSAGE FORM
  13. OMEPRAZOLE [Concomitant]
     Active Substance: OMEPRAZOLE
     Dosage: 40MG 0-0-1?DAILY DOSE: 40 MILLIGRAM
  14. AMLODIPINE [Concomitant]
     Active Substance: AMLODIPINE BESYLATE
     Dosage: 5 MG 1-0-0?DAILY DOSE: 5 MILLIGRAM
  15. DOXAZOSIN [Concomitant]
     Active Substance: DOXAZOSIN MESYLATE
     Dosage: 4 MG 0-0-1?DAILY DOSE: 4 MILLIGRAM
  16. XARELTO [Concomitant]
     Active Substance: RIVAROXABAN
     Dosage: 15MG 1-0-0?DAILY DOSE: 15 MILLIGRAM
  17. JARDIANCE [Concomitant]
     Active Substance: EMPAGLIFLOZIN
  18. SIMVASTATIN [Concomitant]
     Active Substance: SIMVASTATIN
     Dosage: DAILY DOSE: 10 MILLIGRAM
  19. Paracetamol, metamizole sp [Concomitant]
  20. TIMOLOL MALEATE [Concomitant]
     Active Substance: TIMOLOL MALEATE
     Dosage: AT NIGHT?DAILY DOSE: 0.5 PERCENT
  21. CALCIFEDIOL [Concomitant]
     Active Substance: CALCIFEDIOL
     Dosage: 0.266 MG EVERY MONTH
  22. Ferogradumet [Concomitant]
     Dosage: 1 TABLET AT BREAKFAST AND 1 TABLET AT LUNCH?DAILY DOSE: 2 DOSAGE FORM
  23. DUTASTERIDE\TAMSULOSIN [Concomitant]
     Active Substance: DUTASTERIDE\TAMSULOSIN
     Dosage: 1 CAPSULE AT BREAKFAST??DAILY DOSE: 1 DOSAGE FORM

REACTIONS (6)
  - Hyponatraemia [Recovered/Resolved]
  - Electrocardiogram QT prolonged [Unknown]
  - Hyperkalaemia [Recovered/Resolved]
  - Bradycardia [Unknown]
  - Anaemia [Unknown]
  - Off label use [Unknown]

NARRATIVE: CASE EVENT DATE: 20250403
